FAERS Safety Report 15844345 (Version 1)
Quarter: 2019Q1

REPORT INFORMATION
  Report Type: Spontaneous
  Country: US (occurrence: US)
  Receive Date: 20190118
  Receipt Date: 20190118
  Transmission Date: 20190417
  Serious: No
  Sender: FDA-Public Use
  Company Number: US-SA-2019SA013497

PATIENT
  Sex: Female

DRUGS (1)
  1. ACT DRY MOUTH ANTICAVITY FLUORIDE [Suspect]
     Active Substance: SODIUM FLUORIDE
     Dosage: UNK UNK, UNK

REACTIONS (1)
  - Product availability issue [Unknown]
